FAERS Safety Report 5055909-5 (Version None)
Quarter: 2006Q3

REPORT INFORMATION
  Report Type: 
  Country: None (occurrence: None)
  Receive Date: 20060717
  Receipt Date: 20060717
  Transmission Date: 20061208
  Serious: Yes (Death, Hospitalization)
  Sender: FDA-Public Use
  Company Number: None

PATIENT
  Age: 60 Year
  Sex: Male

DRUGS (3)
  1. GADOLINIUM 15CC MAGNEVIST [Suspect]
     Dosage: 10 - 15 CC
     Route: 042
     Dates: start: 20021119, end: 20051222
  2. REDICAT [Concomitant]
  3. ISOVUE-300 [Concomitant]

REACTIONS (21)
  - ACTIVITIES OF DAILY LIVING IMPAIRED [None]
  - ARTHRALGIA [None]
  - ATRIAL FIBRILLATION [None]
  - BLOOD PRESSURE INCREASED [None]
  - CARDIAC DISORDER [None]
  - CARDIAC FAILURE CONGESTIVE [None]
  - DYSPHAGIA [None]
  - DYSURIA [None]
  - EATING DISORDER [None]
  - GASTROINTESTINAL DISORDER [None]
  - LUNG DISORDER [None]
  - MYALGIA [None]
  - NEPHROGENIC FIBROSING DERMOPATHY [None]
  - NERVOUS SYSTEM DISORDER [None]
  - OEDEMA PERIPHERAL [None]
  - OESOPHAGEAL DISORDER [None]
  - PAINFUL DEFAECATION [None]
  - PLEURAL EFFUSION [None]
  - PNEUMONIA ASPIRATION [None]
  - SKIN DISORDER [None]
  - WEIGHT DECREASED [None]
